FAERS Safety Report 8318995-2 (Version None)
Quarter: 2012Q2

REPORT INFORMATION
  Report Type: 
  Country: None (occurrence: None)
  Receive Date: 20120427
  Receipt Date: 20120418
  Transmission Date: 20120825
  Serious: Yes (Other)
  Sender: FDA-Public Use
  Company Number: US-BAYER-2012-038052

PATIENT
  Sex: Male

DRUGS (1)
  1. ALKA-SELTZER PLUS FLU [Suspect]
     Indication: NASOPHARYNGITIS
     Route: 048

REACTIONS (2)
  - CONTUSION [None]
  - GASTRIC HAEMORRHAGE [None]
